FAERS Safety Report 7756656-9 (Version None)
Quarter: 2011Q3

REPORT INFORMATION
  Report Type: 
  Country: None (occurrence: None)
  Receive Date: 20110916
  Receipt Date: 20110912
  Transmission Date: 20111222
  Serious: Yes (Hospitalization)
  Sender: FDA-Public Use
  Company Number: PHHO2009DE02480

PATIENT
  Sex: Female

DRUGS (8)
  1. NO TREATMENT RECEIVED [Suspect]
     Indication: RENAL TRANSPLANT
     Dosage: NO TREATMENT
  2. PREDNISONE [Suspect]
     Indication: RENAL TRANSPLANT
     Dosage: 10 MG
     Route: 048
     Dates: start: 20090216, end: 20090225
  3. MYFORTIC [Suspect]
     Indication: RENAL TRANSPLANT
     Dosage: 1440 MG/D
     Route: 048
     Dates: start: 20090216, end: 20090225
  4. MYFORTIC [Suspect]
     Dosage: 360 MG
     Route: 048
     Dates: start: 20090302
  5. SANDIMMUNE [Suspect]
     Indication: RENAL TRANSPLANT
     Dosage: UNK
     Route: 048
     Dates: start: 20090216, end: 20090225
  6. VALCYTE [Concomitant]
     Dosage: UNK
  7. PANTOPRAZOLE [Concomitant]
     Indication: PROPHYLAXIS
     Dosage: UNK
  8. SIMULECT [Concomitant]
     Indication: RENAL TRANSPLANT
     Dosage: UNK
     Dates: start: 20090216

REACTIONS (4)
  - VIRAL INFECTION [None]
  - DIARRHOEA [None]
  - GASTROENTERITIS NOROVIRUS [None]
  - COLITIS [None]
